FAERS Safety Report 23424519 (Version 1)
Quarter: 2024Q1

REPORT INFORMATION
  Report Type: Spontaneous
  Country: CA (occurrence: CA)
  Receive Date: 20240120
  Receipt Date: 20240120
  Transmission Date: 20240410
  Serious: Yes (Hospitalization, Disabling)
  Sender: FDA-Public Use
  Company Number: None

PATIENT
  Age: 74 Year
  Sex: Female
  Weight: 65 kg

DRUGS (16)
  1. ONDANSETRON [Suspect]
     Active Substance: ONDANSETRON
     Indication: Nausea
     Dosage: 1 EVERY 8 HOURS, INTRAVENOUS BOLUS
  2. SERTRALINE [Suspect]
     Active Substance: SERTRALINE HYDROCHLORIDE
     Indication: Depression
     Dosage: 2 EVERY 1 DAYS
     Route: 048
  3. ACETAMINOPHEN [Concomitant]
     Active Substance: ACETAMINOPHEN
  4. CELECOXIB [Concomitant]
     Active Substance: CELECOXIB
  5. DIMENHYDRINATE [Concomitant]
     Active Substance: DIMENHYDRINATE
  6. HYDROMORPHONE [Concomitant]
     Active Substance: HYDROMORPHONE
  7. LANSOPRAZOLE [Concomitant]
     Active Substance: LANSOPRAZOLE
     Dosage: CAPSULE, DELAYED RELEASE
  8. LORAZEPAM [Concomitant]
     Active Substance: LORAZEPAM
     Route: 065
  9. MAGNESIUM [Concomitant]
     Active Substance: MAGNESIUM
  10. METRONIDAZOLE [Concomitant]
     Active Substance: METRONIDAZOLE
  11. OXYCODONE [Concomitant]
     Active Substance: OXYCODONE
  12. PEGFILGRASTIM [Concomitant]
     Active Substance: PEGFILGRASTIM
  13. PIPERACILLIN AND TAZOBACTAM [Concomitant]
     Active Substance: PIPERACILLIN SODIUM\TAZOBACTAM SODIUM
  14. POTASSIUM [Concomitant]
     Active Substance: POTASSIUM
  15. RAMIPRIL [Concomitant]
     Active Substance: RAMIPRIL
     Route: 065
  16. VITAMIN D [Concomitant]
     Active Substance: VITAMIN D NOS

REACTIONS (9)
  - Acute myocardial infarction [Not Recovered/Not Resolved]
  - Clonus [Not Recovered/Not Resolved]
  - Confusional state [Not Recovered/Not Resolved]
  - Endoscopic retrograde cholangiopancreatography [Not Recovered/Not Resolved]
  - Muscle rigidity [Not Recovered/Not Resolved]
  - Pyrexia [Not Recovered/Not Resolved]
  - Serotonin syndrome [Not Recovered/Not Resolved]
  - Speech disorder [Not Recovered/Not Resolved]
  - Visual impairment [Not Recovered/Not Resolved]
